FAERS Safety Report 24206483 (Version 1)
Quarter: 2024Q3

REPORT INFORMATION
  Report Type: Report from Study
  Country: BR (occurrence: BR)
  Receive Date: 20240813
  Receipt Date: 20240813
  Transmission Date: 20241017
  Serious: Yes (Hospitalization)
  Sender: EMD SERONO INC
  Company Number: BR-Merck Healthcare KGaA-2024042988

PATIENT
  Sex: Female

DRUGS (1)
  1. REBIF [Suspect]
     Active Substance: INTERFERON BETA-1A
     Indication: Product used for unknown indication

REACTIONS (4)
  - Coeliac disease [Recovering/Resolving]
  - Gastrointestinal injury [Recovering/Resolving]
  - Gastritis [Recovering/Resolving]
  - Diarrhoea [Recovering/Resolving]
